FAERS Safety Report 8475253-3 (Version None)
Quarter: 2012Q2

REPORT INFORMATION
  Report Type: 
  Country: None (occurrence: None)
  Receive Date: 20120628
  Receipt Date: 20120619
  Transmission Date: 20120825
  Serious: Yes (Hospitalization)
  Sender: FDA-Public Use
  Company Number: US-JNJFOC-20120610585

PATIENT
  Sex: Male
  Weight: 24.7 kg

DRUGS (10)
  1. PREDNISONE TAB [Concomitant]
  2. URSODIOL [Concomitant]
  3. ZOSYN [Concomitant]
  4. IMODIUM [Concomitant]
  5. HUMIRA [Concomitant]
     Dates: start: 20110705
  6. ANTIBIOTICS [Concomitant]
     Indication: INFLAMMATORY BOWEL DISEASE
  7. FOLIC ACID [Concomitant]
  8. BUDESONIDE [Concomitant]
  9. REMICADE [Suspect]
     Indication: CROHN'S DISEASE
     Route: 042
     Dates: start: 20070101, end: 20110620
  10. METHOTREXATE [Concomitant]

REACTIONS (2)
  - CROHN'S DISEASE [None]
  - DEHYDRATION [None]
